FAERS Safety Report 17374422 (Version 3)
Quarter: 2020Q1

REPORT INFORMATION
  Report Type: Spontaneous
  Country: US (occurrence: US)
  Receive Date: 20200205
  Receipt Date: 20200303
  Transmission Date: 20200409
  Serious: Yes (Other)
  Sender: FDA-Public Use
  Company Number: US-PFIZER INC-2020048196

PATIENT
  Age: 52 Year
  Sex: Female

DRUGS (1)
  1. XELJANZ XR [Suspect]
     Active Substance: TOFACITINIB CITRATE
     Indication: RHEUMATOID ARTHRITIS
     Dosage: 11 MG, 1X/DAY
     Route: 048
     Dates: start: 20200127, end: 20200228

REACTIONS (6)
  - Nausea [Recovering/Resolving]
  - Fatigue [Unknown]
  - Neuropathy peripheral [Unknown]
  - Carpal tunnel syndrome [Unknown]
  - Influenza like illness [Unknown]
  - Vomiting [Unknown]

NARRATIVE: CASE EVENT DATE: 2020
